FAERS Safety Report 23782581 (Version 3)
Quarter: 2024Q3

REPORT INFORMATION
  Report Type: Spontaneous
  Country: US (occurrence: US)
  Receive Date: 20240425
  Receipt Date: 20240701
  Transmission Date: 20241016
  Serious: No
  Sender: PFIZER
  Company Number: US-PFIZER INC-PV202400045813

PATIENT
  Age: 67 Year
  Sex: Female
  Weight: 55.34 kg

DRUGS (1)
  1. NIVESTYM [Suspect]
     Active Substance: FILGRASTIM-AAFI
     Indication: Neutropenia
     Dosage: 300 MG DAILY FOR 5 DAYS
     Dates: start: 20240401

REACTIONS (1)
  - Needle issue [Unknown]
